FAERS Safety Report 5097870-3 (Version None)
Quarter: 2006Q3

REPORT INFORMATION
  Report Type: 
  Country: None (occurrence: None)
  Receive Date: 20060905
  Receipt Date: 20060821
  Transmission Date: 20061208
  Serious: No
  Sender: FDA-Public Use
  Company Number: 36205

PATIENT
  Age: 74 Year
  Sex: Female

DRUGS (8)
  1. CHLORAMPHENICOL [Suspect]
     Dosage: OPHT
     Route: 047
  2. BUPIVACAINE [Concomitant]
  3. CEFUROXIME [Concomitant]
  4. HYALURONIDASE [Concomitant]
  5. LIDOCAINE [Concomitant]
  6. POVIDONE IODINE [Concomitant]
  7. PREDNISOLONE [Concomitant]
  8. PROXYMETACAINE [Concomitant]

REACTIONS (3)
  - DRUG HYPERSENSITIVITY [None]
  - PAROPHTHALMIA [None]
  - VISUAL ACUITY REDUCED [None]
